FAERS Safety Report 14669448 (Version 5)
Quarter: 2018Q2

REPORT INFORMATION
  Report Type: Spontaneous
  Country: CN (occurrence: CN)
  Receive Date: 20180322
  Receipt Date: 20180504
  Transmission Date: 20180711
  Serious: Yes (Hospitalization, Other)
  Sender: FDA-Public Use
  Company Number: CN-VIIV HEALTHCARE LIMITED-CN2018GSK044397

PATIENT
  Sex: Male

DRUGS (5)
  1. INSULIN ASPART [Concomitant]
     Active Substance: INSULIN ASPART
     Indication: PRODUCT USED FOR UNKNOWN INDICATION
     Dosage: UNK
     Route: 042
     Dates: start: 20171001, end: 20180310
  2. VIREAD [Suspect]
     Active Substance: TENOFOVIR DISOPROXIL FUMARATE
     Indication: HEPATITIS B
     Dosage: 300 MG, QD
     Route: 048
     Dates: start: 201710
  3. HEPTODIN [Suspect]
     Active Substance: LAMIVUDINE
     Indication: HEPATITIS B
     Dosage: UNK
     Dates: end: 201710
  4. COMPOUND GLYCYRRHIZIN (CYSTEINE\GLYCINE\GLYCYRRHIZIN) [Suspect]
     Active Substance: CYSTEINE\GLYCINE\GLYCYRRHIZIN
     Indication: PRODUCT USED FOR UNKNOWN INDICATION
     Dosage: UNK
     Dates: start: 20171021, end: 20180130
  5. METFORMIN [Concomitant]
     Active Substance: METFORMIN HYDROCHLORIDE
     Indication: DIABETES MELLITUS
     Dosage: UNK
     Route: 048

REACTIONS (23)
  - Liver injury [Unknown]
  - Drug resistance [Unknown]
  - Spider naevus [Unknown]
  - Liver tenderness [Unknown]
  - Hepatic cirrhosis [Not Recovered/Not Resolved]
  - Gastritis erosive [Unknown]
  - Dermatitis allergic [Recovering/Resolving]
  - Abdominal distension [Unknown]
  - Scab [Unknown]
  - Skin exfoliation [Recovering/Resolving]
  - Skin disorder [Recovering/Resolving]
  - Perihepatic discomfort [Unknown]
  - Erythema [Unknown]
  - Gastric varices [Unknown]
  - Pyrexia [Unknown]
  - Rash [Recovering/Resolving]
  - Constipation [Unknown]
  - Varices oesophageal [Unknown]
  - Skin swelling [Unknown]
  - Decreased appetite [Unknown]
  - Chronic gastritis [Unknown]
  - Viral mutation identified [Unknown]
  - Rash pruritic [Recovering/Resolving]

NARRATIVE: CASE EVENT DATE: 2017
